FAERS Safety Report 11867755 (Version 1)
Quarter: 2015Q4

REPORT INFORMATION
  Report Type: Spontaneous
  Country: ES (occurrence: ES)
  Receive Date: 20151224
  Receipt Date: 20151224
  Transmission Date: 20160305
  Serious: Yes (Death, Hospitalization, Other)
  Sender: FDA-Public Use
  Company Number: ES-CELGENE-ESP-2015123177

PATIENT
  Age: 65 Year
  Sex: Male

DRUGS (4)
  1. SOMATOSTATIN [Concomitant]
     Active Substance: SOMATOSTATIN
     Indication: PRODUCT USED FOR UNKNOWN INDICATION
     Route: 065
  2. ERYTHROPOIETIN [Concomitant]
     Active Substance: ERYTHROPOIETIN
     Indication: ANAEMIA
     Route: 065
  3. GEMCITABINE [Concomitant]
     Active Substance: GEMCITABINE\GEMCITABINE HYDROCHLORIDE
     Indication: ADENOCARCINOMA PANCREAS
     Route: 065
  4. ABRAXANE [Suspect]
     Active Substance: PACLITAXEL
     Indication: ADENOCARCINOMA PANCREAS
     Route: 041

REACTIONS (9)
  - Hepatic failure [Fatal]
  - Intestinal obstruction [Unknown]
  - Anaemia [Unknown]
  - Febrile infection [Unknown]
  - Neuropathy peripheral [Unknown]
  - Rectal haemorrhage [Unknown]
  - Hyperosmolar hyperglycaemic state [Unknown]
  - Disease progression [Unknown]
  - Subileus [Unknown]

NARRATIVE: CASE EVENT DATE: 201505
